FAERS Safety Report 10348219 (Version 3)
Quarter: 2015Q1

REPORT INFORMATION
  Report Type: Spontaneous
  Country: US (occurrence: US)
  Receive Date: 20140729
  Receipt Date: 20150302
  Transmission Date: 20150720
  Serious: Yes (Death, Other)
  Sender: FDA-Public Use
  Company Number: US-BAYER-2014-113055

PATIENT
  Age: 75 Year
  Sex: Male

DRUGS (18)
  1. NIASPAN [Concomitant]
     Active Substance: NIACIN
     Dosage: 1000 MG, QD
  2. XOFIGO [Suspect]
     Active Substance: RADIUM RA-223 DICHLORIDE
     Indication: PROSTATE CANCER STAGE IV
     Dosage: 103.7 UCI
     Route: 042
     Dates: start: 20131125, end: 20131125
  3. XOFIGO [Suspect]
     Active Substance: RADIUM RA-223 DICHLORIDE
     Indication: PROSTATE CANCER STAGE IV
     Dosage: 102.33 UCI
     Route: 042
     Dates: start: 20140304, end: 20140304
  4. NAPROXEN. [Concomitant]
     Active Substance: NAPROXEN
  5. XOFIGO [Suspect]
     Active Substance: RADIUM RA-223 DICHLORIDE
     Indication: PROSTATE CANCER STAGE IV
     Dosage: 104.5 UCI
     Route: 042
     Dates: start: 20131028, end: 20131028
  6. XOFIGO [Suspect]
     Active Substance: RADIUM RA-223 DICHLORIDE
     Indication: PROSTATE CANCER STAGE IV
     Dosage: 105.8 UCI
     Route: 042
     Dates: start: 20140120, end: 20140120
  7. ALTOPREV [Concomitant]
     Active Substance: LOVASTATIN
     Dosage: 60 MG, QD
  8. ALLOPURINOL. [Concomitant]
     Active Substance: ALLOPURINOL
     Dosage: 300 MG, QD
  9. MIRALAX [Concomitant]
     Active Substance: POLYETHYLENE GLYCOL 3350
     Dosage: UNK UNK, PRN
  10. XOFIGO [Suspect]
     Active Substance: RADIUM RA-223 DICHLORIDE
     Indication: PROSTATE CANCER STAGE IV
     Dosage: 105.7 UCI
     Route: 042
     Dates: start: 20131223, end: 20131223
  11. MULTIVITAMIN [Concomitant]
     Active Substance: VITAMINS
  12. LISINOPRIL. [Concomitant]
     Active Substance: LISINOPRIL
     Dosage: 20 MG, QD
  13. CALCIUM +VIT D [Concomitant]
     Active Substance: CALCIUM\VITAMIN D
  14. MEGACE [Concomitant]
     Active Substance: MEGESTROL ACETATE
     Dosage: 40 MG, QD
  15. OXYCODONE [Concomitant]
     Active Substance: OXYCODONE
     Dosage: 5 MG, QID
  16. XOFIGO [Suspect]
     Active Substance: RADIUM RA-223 DICHLORIDE
     Indication: PROSTATE CANCER STAGE IV
     Dosage: 104.7 UCI
     Route: 042
     Dates: start: 20131001, end: 20131001
  17. LUMIGAN [Concomitant]
     Active Substance: BIMATOPROST
  18. ERGOCALCIFEROL. [Concomitant]
     Active Substance: ERGOCALCIFEROL

REACTIONS (5)
  - Subdural haematoma [Fatal]
  - Thrombocytopenia [None]
  - Subarachnoid haemorrhage [None]
  - Fall [Fatal]
  - Anaemia [Not Recovered/Not Resolved]

NARRATIVE: CASE EVENT DATE: 20140519
